FAERS Safety Report 8382727 (Version 5)
Quarter: 2012Q4

REPORT INFORMATION
  Report Type: 
  Country: US (occurrence: US)
  Receive Date: 20120201
  Receipt Date: 20121212
  Transmission Date: 20130627
  Serious: Yes (Other)
  Sender: FDA-Public Use
  Company Number: US-ROCHE-1035006

PATIENT
  Sex: Male

DRUGS (1)
  1. ACCUTANE [Suspect]
     Route: 065

REACTIONS (4)
  - Inflammatory bowel disease [Unknown]
  - Anxiety [Unknown]
  - Diverticulitis [Unknown]
  - Large intestine polyp [Unknown]
